FAERS Safety Report 23755149 (Version 1)
Quarter: 2024Q2

REPORT INFORMATION
  Report Type: Spontaneous
  Country: US (occurrence: US)
  Receive Date: 20240418
  Receipt Date: 20240418
  Transmission Date: 20240716
  Serious: No
  Sender: FDA-Public Use
  Company Number: US-JNJFOC-20240442087

PATIENT
  Age: 66 Year
  Sex: Female

DRUGS (2)
  1. OPSUMIT [Suspect]
     Active Substance: MACITENTAN
     Indication: Product used for unknown indication
     Route: 048
  2. TREPROSTINIL SODIUM [Suspect]
     Active Substance: TREPROSTINIL SODIUM
     Indication: Pulmonary arterial hypertension
     Dosage: 0.6 MG/ML
     Route: 065
     Dates: start: 202312

REACTIONS (10)
  - Fluid retention [Unknown]
  - Dyspnoea exertional [Not Recovered/Not Resolved]
  - Decreased activity [Unknown]
  - Mood altered [Unknown]
  - Abdominal distension [Unknown]
  - Fatigue [Unknown]
  - Cough [Unknown]
  - Pharyngeal disorder [Unknown]
  - Thirst [Unknown]
  - Oedema [Not Recovered/Not Resolved]
